FAERS Safety Report 10241291 (Version 1)
Quarter: 2014Q1

REPORT INFORMATION
  Report Type: Spontaneous
  Country: US (occurrence: None)
  Receive Date: 20140306
  Receipt Date: 20140306
  Transmission Date: 20141002
  Serious: Yes (Hospitalization)
  Sender: FDA-Public Use
  Company Number: 163-21880-13043278

PATIENT
  Age: 70 Year
  Sex: Female
  Weight: 99.79 kg

DRUGS (4)
  1. REVLIMID (LENALIDOMIDE) (10 MILLIGRAM, CAPSULES) [Suspect]
     Indication: PLASMA CELL MYELOMA
     Dosage: 10MG, 21 IN 21D, PO
     Route: 048
     Dates: start: 20121220, end: 20130407
  2. LOVENOX (HEPARIN-F-RACTION, SODIUM SALT) [Concomitant]
  3. DECADRON (DEXAMETHASONE) [Concomitant]
  4. VELCADE (BORTEZOMIB) [Concomitant]

REACTIONS (1)
  - Thrombosis [None]
